FAERS Safety Report 12374579 (Version 2)
Quarter: 2016Q3

REPORT INFORMATION
  Report Type: Report from Study
  Country: BR (occurrence: BR)
  Receive Date: 20160517
  Receipt Date: 20160718
  Transmission Date: 20161109
  Serious: Yes (Other)
  Sender: FDA-Public Use
  Company Number: PHHY2016BR044660

PATIENT
  Age: 49 Year
  Sex: Female
  Weight: 44.5 kg

DRUGS (4)
  1. DEXAMETHASONE. [Suspect]
     Active Substance: DEXAMETHASONE
     Indication: PRODUCT USED FOR UNKNOWN INDICATION
     Dosage: UNK
     Route: 065
  2. PURAN [Concomitant]
     Active Substance: LEVOTHYROXINE SODIUM
     Indication: PRODUCT USED FOR UNKNOWN INDICATION
     Dosage: UNK
     Route: 065
  3. AFINITOR [Suspect]
     Active Substance: EVEROLIMUS
     Indication: BREAST CANCER METASTATIC
     Dosage: 1 DF OF 10 MG, QD
     Route: 048
     Dates: start: 201511
  4. AROMASIN [Concomitant]
     Active Substance: EXEMESTANE
     Indication: BREAST CANCER
     Dosage: 25 MG, QD
     Route: 048

REACTIONS (24)
  - Dysphonia [Recovered/Resolved]
  - Urinary tract infection [Recovering/Resolving]
  - Epistaxis [Recovering/Resolving]
  - Aphonia [Recovering/Resolving]
  - Sensitivity of teeth [Recovering/Resolving]
  - Gastrooesophageal reflux disease [Recovering/Resolving]
  - Underweight [Unknown]
  - Malaise [Recovering/Resolving]
  - Peripheral swelling [Recovering/Resolving]
  - Subcutaneous abscess [Recovering/Resolving]
  - Stomatitis [Recovering/Resolving]
  - Nodule [Unknown]
  - Skin discolouration [Recovering/Resolving]
  - Muscle fatigue [Unknown]
  - Blood glucose increased [Unknown]
  - Insomnia [Recovering/Resolving]
  - Oral candidiasis [Recovering/Resolving]
  - Diabetes mellitus [Recovering/Resolving]
  - Headache [Unknown]
  - Depression [Unknown]
  - Fatigue [Recovering/Resolving]
  - Pruritus [Recovering/Resolving]
  - Weight decreased [Recovering/Resolving]
  - Pyrexia [Recovered/Resolved]

NARRATIVE: CASE EVENT DATE: 201604
